FAERS Safety Report 9413152 (Version 1)
Quarter: 2013Q2

REPORT INFORMATION
  Report Type: Spontaneous
  Country: US (occurrence: None)
  Receive Date: 20130506
  Receipt Date: 20130506
  Transmission Date: 20140414
  Serious: Yes (Other)
  Sender: FDA-Public Use
  Company Number: 20130404CINRY4085

PATIENT
  Age: 34 Year
  Sex: Female

DRUGS (4)
  1. CINRYZE [Suspect]
     Indication: PROPHYLAXIS
     Dosage: EVERY 3 TO 4 DAYS
     Route: 042
     Dates: start: 20100501
  2. CINRYZE [Suspect]
     Indication: HEREDITARY ANGIOEDEMA
     Dosage: EVERY 3 TO 4 DAYS
     Route: 042
     Dates: start: 20100501
  3. MULTIVITAMIN (VIGRAN) (ERGOCALCIFEROL, ASCORBIC ACID, PYRIDOXINE HYDROCHLORIDE, THIAMINE HYDROCHLORIDE, RETINOL, RIBOFLAVIN, NICOTINAMIDE, CALCIUM PANTOTHENATE) [Concomitant]
  4. IBUPROFEN (IBUPROFEN) (IBUPROFEN) [Concomitant]

REACTIONS (4)
  - Maternal exposure during pregnancy [None]
  - Hepatitis C virus test positive [None]
  - Hepatitis C antibody positive [None]
  - Hereditary angioedema [None]
